FAERS Safety Report 19030252 (Version 1)
Quarter: 2021Q1

REPORT INFORMATION
  Report Type: Spontaneous
  Country: US (occurrence: US)
  Receive Date: 20210318
  Receipt Date: 20210318
  Transmission Date: 20210420
  Serious: Yes (Hospitalization)
  Sender: FDA-Public Use
  Company Number: None

PATIENT
  Age: 61 Year
  Sex: Female

DRUGS (1)
  1. TAFINLAR [Suspect]
     Active Substance: DABRAFENIB MESYLATE
     Route: 048
     Dates: start: 201912

REACTIONS (4)
  - Brain oedema [None]
  - Movement disorder [None]
  - Cerebral haemorrhage [None]
  - Brain neoplasm [None]

NARRATIVE: CASE EVENT DATE: 20210218
